FAERS Safety Report 5581841-4 (Version None)
Quarter: 2008Q1

REPORT INFORMATION
  Report Type: 
  Country: None (occurrence: None)
  Receive Date: 20080104
  Receipt Date: 20071227
  Transmission Date: 20080703
  Serious: Yes (Death, Other)
  Sender: FDA-Public Use
  Company Number: US-PFIZER INC-2008000344

PATIENT
  Sex: Female

DRUGS (4)
  1. LIPITOR [Suspect]
  2. CADUET [Suspect]
  3. NEURONTIN [Suspect]
  4. ZOLOFT [Suspect]

REACTIONS (1)
  - DEATH [None]
